FAERS Safety Report 8485434-0 (Version None)
Quarter: 2012Q3

REPORT INFORMATION
  Report Type: 
  Country: None (occurrence: None)
  Receive Date: 20120703
  Receipt Date: 20120621
  Transmission Date: 20120928
  Serious: Yes (Other)
  Sender: FDA-Public Use
  Company Number: JP-VERTEX PHARMACEUTICALS INC.-AE-2012-009419

PATIENT
  Age: 50 Year
  Sex: Male

DRUGS (7)
  1. REBETOL [Concomitant]
     Route: 048
     Dates: start: 20120530
  2. PEGINTERFERON ALFA-2B [Concomitant]
     Indication: HEPATITIS C
     Route: 058
     Dates: start: 20120418
  3. ALLEGRA [Concomitant]
     Route: 048
     Dates: start: 20120530
  4. TELAVIC (TELAPREVIR) [Suspect]
     Indication: HEPATITIS C
     Route: 048
     Dates: start: 20120418
  5. REBETOL [Concomitant]
     Indication: HEPATITIS C
     Route: 048
     Dates: start: 20120418
  6. LOXONIN [Concomitant]
     Route: 048
     Dates: start: 20120418, end: 20120425
  7. MUCOSTA [Concomitant]
     Route: 048
     Dates: start: 20120418, end: 20120425

REACTIONS (1)
  - ERYTHEMA MULTIFORME [None]
